FAERS Safety Report 10085247 (Version 2)
Quarter: 2014Q2

REPORT INFORMATION
  Report Type: Spontaneous
  Country: IT (occurrence: IT)
  Receive Date: 20140417
  Receipt Date: 20140603
  Transmission Date: 20141212
  Serious: Yes (Other)
  Sender: FDA-Public Use
  Company Number: PHHY2014IT044110

PATIENT
  Sex: Female

DRUGS (2)
  1. ALPRAZOLAM [Suspect]
     Indication: SUICIDE ATTEMPT
     Dosage: 40 DF, ONCE/SINGLE
     Route: 048
     Dates: start: 20140311, end: 20140311
  2. DELORAZEPAM [Suspect]
     Indication: SUICIDE ATTEMPT
     Dosage: 40 ML, ONCE/SINGLE
     Route: 048
     Dates: start: 20140311, end: 20140311

REACTIONS (1)
  - Loss of consciousness [Unknown]
